FAERS Safety Report 6441631-7 (Version None)
Quarter: 2009Q4

REPORT INFORMATION
  Report Type: 
  Country: None (occurrence: None)
  Receive Date: 20091116
  Receipt Date: 20091113
  Transmission Date: 20100525
  Serious: Yes (Hospitalization)
  Sender: FDA-Public Use
  Company Number: US-B.I. PHARMACEUTICALS,INC./RIDGEFIELD-2009-BP-11339BP

PATIENT
  Age: 61 Year
  Sex: Female

DRUGS (6)
  1. SPIRIVA [Suspect]
     Indication: CHRONIC OBSTRUCTIVE PULMONARY DISEASE
     Route: 055
     Dates: start: 20060101
  2. CHANTIX [Concomitant]
     Indication: EX-TOBACCO USER
     Dates: start: 20070101
  3. PREDNISONE [Concomitant]
     Dates: start: 20090901
  4. ALBUTEROL [Concomitant]
     Indication: CHRONIC OBSTRUCTIVE PULMONARY DISEASE
     Dates: start: 20060101
  5. ADVAIR DISKUS 100/50 [Concomitant]
     Indication: CHRONIC OBSTRUCTIVE PULMONARY DISEASE
     Dates: start: 20060101
  6. NEURONTIN [Concomitant]

REACTIONS (4)
  - ANXIETY [None]
  - BRONCHITIS [None]
  - DEPRESSION [None]
  - RESPIRATORY TRACT INFECTION [None]
